FAERS Safety Report 16817868 (Version 1)
Quarter: 2019Q3

REPORT INFORMATION
  Report Type: Spontaneous
  Country: US (occurrence: US)
  Receive Date: 20190917
  Receipt Date: 20190917
  Transmission Date: 20191005
  Serious: Yes (Hospitalization)
  Sender: FDA-Public Use
  Company Number: US-PURACAP PHARMACEUTICAL LLC-2019EPC00256

PATIENT
  Age: 44 Year
  Sex: Male

DRUGS (2)
  1. VANCOMYCIN [Suspect]
     Active Substance: VANCOMYCIN
     Indication: OSTEOMYELITIS
     Dosage: UNK
     Route: 042
  2. DOXYCYCLINE HYCLATE. [Suspect]
     Active Substance: DOXYCYCLINE HYCLATE
     Indication: OSTEOMYELITIS
     Dosage: 100 MG, 2X/DAY (EVERY 12 HOURS)
     Route: 048

REACTIONS (1)
  - Acute generalised exanthematous pustulosis [Unknown]
